FAERS Safety Report 4489573-0 (Version None)
Quarter: 2004Q4

REPORT INFORMATION
  Report Type: 
  Country: None (occurrence: None)
  Receive Date: 20041026
  Receipt Date: 20041020
  Transmission Date: 20050328
  Serious: Yes (Hospitalization)
  Sender: FDA-Public Use
  Company Number: RB-1007-2004

PATIENT
  Age: 35 Year
  Sex: Male

DRUGS (1)
  1. BUPRENORPHINE HCL [Suspect]
     Indication: DRUG WITHDRAWAL MAINTENANCE THERAPY
     Dosage: 16 MG
     Route: 042

REACTIONS (11)
  - ANGIOPATHY [None]
  - CYANOSIS [None]
  - HAEMORRHAGE [None]
  - INSOMNIA [None]
  - INTENTIONAL MISUSE [None]
  - PAIN [None]
  - PARAESTHESIA [None]
  - PERIPHERAL ISCHAEMIA [None]
  - PULSE ABSENT [None]
  - THERAPEUTIC RESPONSE DECREASED [None]
  - ULCER [None]
